FAERS Safety Report 9641947 (Version 3)
Quarter: 2019Q3

REPORT INFORMATION
  Report Type: Spontaneous
  Country: DE (occurrence: DE)
  Receive Date: 20131023
  Receipt Date: 20190715
  Transmission Date: 20191005
  Serious: Yes (Congenital Anomaly, Other)
  Sender: FDA-Public Use
  Company Number: DE-MYLANLABS-2013S1023019

PATIENT
  Sex: Male
  Weight: 2.52 kg

DRUGS (6)
  1. UTROGEST [Suspect]
     Active Substance: PROGESTERONE
     Indication: PRODUCT USED FOR UNKNOWN INDICATION
     Dosage: 100 MILLIGRAM, QD
     Route: 064
     Dates: start: 20091105, end: 20091126
  2. RAMIPRIL. [Suspect]
     Active Substance: RAMIPRIL
     Indication: HYPERTENSION
     Dosage: UNK
     Route: 064
     Dates: start: 20090903, end: 200909
  3. DOPEGYT [Suspect]
     Active Substance: METHYLDOPA
     Dosage: SHORTLY PRIOR TO BIRTH
     Dates: end: 20100412
  4. FOLIC ACID. [Concomitant]
     Active Substance: FOLIC ACID
     Indication: PRODUCT USED FOR UNKNOWN INDICATION
     Dosage: UNK
     Route: 064
  5. OBSIDAN (PROPRANOLOL HYDROCHLORIDE) [Suspect]
     Active Substance: PROPRANOLOL HYDROCHLORIDE
     Indication: PRODUCT USED FOR UNKNOWN INDICATION
     Dosage: 25 MILLIGRAM, BID
     Route: 064
     Dates: start: 20090903, end: 20100412
  6. DOPEGYT [Suspect]
     Active Substance: METHYLDOPA
     Indication: PRODUCT USED FOR UNKNOWN INDICATION
     Dosage: 250 MILLIGRAM, QD
     Route: 064
     Dates: start: 20090922, end: 20100412

REACTIONS (8)
  - Ureteric dilatation [Not Recovered/Not Resolved]
  - Urinary tract malformation [Not Recovered/Not Resolved]
  - Respiratory disorder neonatal [Unknown]
  - Premature baby [Unknown]
  - Foetal exposure during pregnancy [Recovered/Resolved]
  - Congenital hydronephrosis [Not Recovered/Not Resolved]
  - Pyelocaliectasis [Not Recovered/Not Resolved]
  - Low birth weight baby [Unknown]

NARRATIVE: CASE EVENT DATE: 20090922
